FAERS Safety Report 24049499 (Version 2)
Quarter: 2024Q3

REPORT INFORMATION
  Report Type: Spontaneous
  Country: US (occurrence: US)
  Receive Date: 20240704
  Receipt Date: 20240717
  Transmission Date: 20241016
  Serious: Yes (Death, Other)
  Sender: TEVA
  Company Number: US-TEVA-VS-3214290

PATIENT
  Sex: Female

DRUGS (15)
  1. VINCRISTINE [Suspect]
     Active Substance: VINCRISTINE
     Indication: B-cell type acute leukaemia
     Dosage: INITIAL DOSE NOT STATED
     Route: 065
  2. VINCRISTINE [Suspect]
     Active Substance: VINCRISTINE
     Indication: B-cell type acute leukaemia
     Dosage: AS A PART OF MINI-HYPER-CVAD CHEMOTHERAPY REGIMEN
     Route: 065
  3. DEXAMETHASONE [Suspect]
     Active Substance: DEXAMETHASONE
     Indication: B-cell type acute leukaemia
     Dosage: DOSE NOT STATED
     Route: 065
  4. DEXAMETHASONE [Suspect]
     Active Substance: DEXAMETHASONE
     Indication: B-cell type acute leukaemia
     Dosage: AS A PART OF MINI-HYPER-CVAD CHEMOTHERAPY REGIMEN
     Route: 065
  5. METHOTREXATE [Suspect]
     Active Substance: METHOTREXATE
     Indication: B-cell type acute leukaemia
     Dosage: AS A PART OF MINI-HYPER-CVAD CHEMOTHERAPY REGIMEN
     Route: 065
  6. METHOTREXATE [Suspect]
     Active Substance: METHOTREXATE
     Indication: B-cell type acute leukaemia
     Dosage: HIGH-DOSE
     Route: 048
  7. FLUDARABINE [Concomitant]
     Active Substance: FLUDARABINE PHOSPHATE
     Indication: B-cell type acute leukaemia
  8. CYCLOPHOSPHAMIDE [Suspect]
     Active Substance: CYCLOPHOSPHAMIDE
     Indication: B-cell type acute leukaemia
     Route: 065
  9. CYCLOPHOSPHAMIDE [Suspect]
     Active Substance: CYCLOPHOSPHAMIDE
     Indication: B-cell type acute leukaemia
     Dosage: AS A PART OF MINI-HYPER-CVAD CHEMOTHERAPY REGIMEN
     Route: 065
  10. CYCLOPHOSPHAMIDE [Suspect]
     Active Substance: CYCLOPHOSPHAMIDE
     Indication: B-cell type acute leukaemia
     Route: 065
  11. DOXORUBICIN [Suspect]
     Active Substance: DOXORUBICIN
     Indication: B-cell type acute leukaemia
     Dosage: AS A PART OF MINI-HYPER-CVAD CHEMOTHERAPY REGIMEN
     Route: 065
  12. CYTARABINE [Suspect]
     Active Substance: CYTARABINE
     Indication: B-cell type acute leukaemia
     Dosage: AS A PART OF MINI-HYPER-CVAD CHEMOTHERAPY REGIMEN
     Route: 065
  13. PEG/L-ASPARAGINASE [Suspect]
     Active Substance: PEGASPARGASE
     Indication: B-cell type acute leukaemia
     Dosage: DOSE NOT STATED
     Route: 065
  14. TISAGENLECLEUCEL [Suspect]
     Active Substance: TISAGENLECLEUCEL
     Indication: B-cell type acute leukaemia
     Dosage: DOSE NOT STATED; REINFUSION
     Route: 065
  15. TISAGENLECLEUCEL [Suspect]
     Active Substance: TISAGENLECLEUCEL
     Indication: B-cell type acute leukaemia
     Dosage: DOSE NOT STATED
     Route: 065

REACTIONS (6)
  - Drug ineffective [Fatal]
  - Bacillus infection [Unknown]
  - Cytokine release syndrome [Unknown]
  - Escherichia bacteraemia [Unknown]
  - Alpha haemolytic streptococcal infection [Unknown]
  - Meningitis [Unknown]
